FAERS Safety Report 9419856 (Version 3)
Quarter: 2013Q3

REPORT INFORMATION
  Report Type: Spontaneous
  Country: MT (occurrence: MT)
  Receive Date: 20130725
  Receipt Date: 20130910
  Transmission Date: 20140515
  Serious: Yes (Other)
  Sender: FDA-Public Use
  Company Number: MT-B.I. PHARMACEUTICALS,INC./RIDGEFIELD-2013-UK-01449UK

PATIENT
  Age: 51 Year
  Sex: Female

DRUGS (5)
  1. MOBIC [Suspect]
     Indication: INFLAMMATION
     Dosage: 1-2 TABLETS DAILY
     Route: 048
     Dates: start: 20130701, end: 20130718
  2. MOBIC [Suspect]
     Indication: PAIN
  3. CODIPRONT [Concomitant]
     Indication: ANALGESIC THERAPY
     Dosage: 1 ANZ
  4. CODIPRONT [Concomitant]
     Indication: COUGH
  5. CALCIUM TABLETS [Concomitant]
     Indication: OSTEOPOROSIS

REACTIONS (5)
  - Blood pressure increased [Recovered/Resolved]
  - Swelling [Recovered/Resolved]
  - Hypoaesthesia oral [Recovered/Resolved]
  - Paraesthesia oral [Recovered/Resolved]
  - Malaise [Unknown]
